FAERS Safety Report 6043518-0 (Version None)
Quarter: 2009Q1

REPORT INFORMATION
  Report Type: 
  Country: None (occurrence: None)
  Receive Date: 20090114
  Receipt Date: 20090114
  Transmission Date: 20090719
  Serious: No
  Sender: FDA-Public Use
  Company Number: None

PATIENT
  Sex: Female
  Weight: 68.0396 kg

DRUGS (24)
  1. BONIVA [Suspect]
     Indication: OSTEOPOROSIS
     Dosage: 3MG EVERY 3 MONTH IV 1 TIME DOSE OVER 15-30MIN
     Route: 042
  2. NEXIUM [Concomitant]
  3. FLONASE [Concomitant]
  4. ALLEGRA [Concomitant]
  5. WELLBUTRIN [Concomitant]
  6. LEXAPRO [Concomitant]
  7. PULMICORT [Concomitant]
  8. IMITREX [Concomitant]
  9. PHISOHEX LIQUID [Concomitant]
  10. TRIAMCINOLONE [Concomitant]
  11. ZANTAC [Concomitant]
  12. TYLENOL (CAPLET) [Concomitant]
  13. GLUCOSAMINE [Concomitant]
  14. CHONDROITIN [Concomitant]
  15. CENTRUM SILVER MULTIVITAMIN [Concomitant]
  16. CALCIUM [Concomitant]
  17. MAGNESIUM SULFATE [Concomitant]
  18. PHOSPHORUS [Concomitant]
  19. VITAMIN D [Concomitant]
  20. MAALOX [Concomitant]
  21. SIMITHECONE [Concomitant]
  22. LACTAID [Concomitant]
  23. HYDROCORTISONE CREAM [Concomitant]
  24. FORTEO [Concomitant]

REACTIONS (3)
  - CHEST DISCOMFORT [None]
  - DYSPNOEA [None]
  - PALPITATIONS [None]
